FAERS Safety Report 6261377-8 (Version None)
Quarter: 2009Q3

REPORT INFORMATION
  Report Type: 
  Country: None (occurrence: None)
  Receive Date: 20090709
  Receipt Date: 20090629
  Transmission Date: 20100115
  Serious: Yes (Disabling)
  Sender: FDA-Public Use
  Company Number: FR-PFIZER INC-2009233375

PATIENT
  Age: 63 Year

DRUGS (6)
  1. CAMPTOSAR [Suspect]
     Dosage: 304 MG, SINGLE
     Route: 042
     Dates: start: 20090407, end: 20090407
  2. SOLU-MEDROL [Suspect]
     Dosage: UNK
     Route: 051
     Dates: start: 20090407
  3. ATROPINE SULFATE [Suspect]
     Dosage: UNK
     Route: 051
     Dates: start: 20090407
  4. FLUOROURACIL [Suspect]
     Dosage: 4725 MG (50 MG/ML), SINGLE
     Route: 042
     Dates: start: 20090407, end: 20090407
  5. CALCIUM FOLINATE [Suspect]
     Dosage: 676 MG, SINGLE
     Route: 042
     Dates: start: 20090407, end: 20090407
  6. ONDANSETRON HCL [Suspect]
     Dosage: 2 DF, 1X/DAY
     Route: 048
     Dates: start: 20090407, end: 20090410

REACTIONS (3)
  - APHASIA [None]
  - HEMIANOPIA [None]
  - HEMIPARESIS [None]
